FAERS Safety Report 24567131 (Version 2)
Quarter: 2024Q4

REPORT INFORMATION
  Report Type: Spontaneous
  Country: US (occurrence: US)
  Receive Date: 20241030
  Receipt Date: 20241107
  Transmission Date: 20250115
  Serious: Yes (Hospitalization)
  Sender: pharmaAND
  Company Number: US-PHARMAAND GMBH-2024PHR00578

PATIENT
  Sex: Male

DRUGS (2)
  1. RUBRACA [Suspect]
     Active Substance: RUCAPARIB CAMSYLATE
     Indication: Prostate cancer
     Dosage: 300MG BID
     Route: 048
     Dates: end: 20241015
  2. RUBRACA [Suspect]
     Active Substance: RUCAPARIB CAMSYLATE
     Dosage: 300MG ONCE DAILY
     Route: 048
     Dates: start: 20241017

REACTIONS (2)
  - Fall [Unknown]
  - Off label use [Recovered/Resolved]
